FAERS Safety Report 5407082-9 (Version None)
Quarter: 2007Q3

REPORT INFORMATION
  Report Type: 
  Country: None (occurrence: None)
  Receive Date: 20070802
  Receipt Date: 20070718
  Transmission Date: 20080115
  Serious: Yes (Hospitalization, Other)
  Sender: FDA-Public Use
  Company Number: 016297

PATIENT
  Age: 49 Year
  Sex: Male

DRUGS (4)
  1. DIAMOX [Suspect]
     Indication: COORDINATION ABNORMAL
     Dosage: 250 MG, QID
  2. SIMVASTATIN [Suspect]
     Indication: HYPERLIPIDAEMIA
     Dosage: 40 MG, QD, ORAL
     Route: 048
     Dates: start: 20041101, end: 20061120
  3. BENDROFLUAZIDE (BENDROFLUMETHIAZIDE) [Concomitant]
  4. CITALOPRAM HYDROBROMIDE [Concomitant]

REACTIONS (12)
  - BLOOD BICARBONATE DECREASED [None]
  - CARBON DIOXIDE DECREASED [None]
  - CONDITION AGGRAVATED [None]
  - COORDINATION ABNORMAL [None]
  - DEPRESSED LEVEL OF CONSCIOUSNESS [None]
  - DYSARTHRIA [None]
  - HYPERAMMONAEMIA [None]
  - MENTAL DISORDER [None]
  - METABOLIC ACIDOSIS [None]
  - NYSTAGMUS [None]
  - SOMNOLENCE [None]
  - UPPER RESPIRATORY TRACT INFECTION [None]
